FAERS Safety Report 16239916 (Version 1)
Quarter: 2019Q2

REPORT INFORMATION
  Report Type: Spontaneous
  Country: US (occurrence: US)
  Receive Date: 20190425
  Receipt Date: 20190425
  Transmission Date: 20190711
  Serious: Yes (Life-Threatening, Hospitalization)
  Sender: FDA-Public Use
  Company Number: US-BAYER-2019-081682

PATIENT
  Age: 42 Year
  Sex: Female

DRUGS (2)
  1. BAYER ASPIRIN [Suspect]
     Active Substance: ASPIRIN
     Dosage: UNK
  2. WARFARIN [Suspect]
     Active Substance: WARFARIN

REACTIONS (6)
  - Spinal subdural haematoma [None]
  - Spinal subarachnoid haemorrhage [None]
  - Lumbar spinal stenosis [None]
  - Brain midline shift [Recovered/Resolved]
  - Subdural haemorrhage [Recovered/Resolved]
  - Labelled drug-drug interaction medication error [None]
